FAERS Safety Report 6529041-5 (Version None)
Quarter: 2009Q4

REPORT INFORMATION
  Report Type: 
  Country: None (occurrence: None)
  Receive Date: 20091231
  Receipt Date: 20091222
  Transmission Date: 20100525
  Serious: Yes (Life-Threatening, Hospitalization)
  Sender: FDA-Public Use
  Company Number: 2009SP043222

PATIENT
  Age: 28 Day
  Sex: Male
  Weight: 2.8 kg

DRUGS (2)
  1. ROCURONIUM BROMIDE [Suspect]
     Indication: NEUROMUSCULAR BLOCKING THERAPY
     Dosage: 1.5 MG;
  2. ATRACURIUM BESYLATE [Suspect]
     Indication: NEUROMUSCULAR BLOCKING THERAPY
     Dosage: 1.5 MG; INBO

REACTIONS (7)
  - BRADYCARDIA [None]
  - EXOPHTHALMOS [None]
  - HYPOXIA [None]
  - PNEUMONIA [None]
  - RALES [None]
  - RESPIRATORY TRACT INFECTION [None]
  - SINUS TACHYCARDIA [None]
